FAERS Safety Report 5700704-4 (Version None)
Quarter: 2008Q2

REPORT INFORMATION
  Report Type: 
  Country: None (occurrence: None)
  Receive Date: 20080409
  Receipt Date: 20080409
  Transmission Date: 20081010
  Serious: No
  Sender: FDA-Public Use
  Company Number: None

PATIENT
  Sex: Male
  Weight: 12.2471 kg

DRUGS (1)
  1. SINGULAIR [Suspect]
     Dosage: 4 MG DAILY PO  A LITTLE MORE THAN A YEAR
     Route: 048

REACTIONS (4)
  - ANGER [None]
  - EATING DISORDER [None]
  - MOOD ALTERED [None]
  - SOCIAL AVOIDANT BEHAVIOUR [None]
